FAERS Safety Report 10810238 (Version 1)
Quarter: 2015Q1

REPORT INFORMATION
  Report Type: Spontaneous
  Country: US (occurrence: None)
  Receive Date: 20150212
  Receipt Date: 20150212
  Transmission Date: 20150721
  Serious: No
  Sender: FDA-Public Use
  Company Number: None

PATIENT
  Age: 76 Year
  Sex: Female
  Weight: 77.11 kg

DRUGS (12)
  1. LUTEIN [Concomitant]
     Active Substance: LUTEIN
  2. MAGNESIUM [Concomitant]
     Active Substance: MAGNESIUM
  3. SYNTHROID [Concomitant]
     Active Substance: LEVOTHYROXINE SODIUM
  4. TIZANIDINE (TIZANIDINE) [Suspect]
     Active Substance: TIZANIDINE
     Indication: MUSCLE RELAXANT THERAPY
     Dosage: ONE CAPSULE BY MOUTH BEDTIME  EVERY EIGHT HOURS NEEDED FOR MUSCLE/PAIN
     Route: 048
     Dates: start: 20141015, end: 20141127
  5. VENTOLIN HFA 18 GRAM INHALER [Concomitant]
  6. VITAMIN E [Concomitant]
     Active Substance: .ALPHA.-TOCOPHEROL
  7. VITAMIN B COMPLEX [Concomitant]
     Active Substance: CYANOCOBALAMIN\DEXPANTHENOL\NIACINAMIDE\PYRIDOXINE HYDROCHLORIDE\RIBOFLAVIN 5^-PHOSPHATE SODIUM\THIAMINE HYDROCHLORIDE\VITAMIN B COMPLEX
  8. VITAMIN B12 [Concomitant]
     Active Substance: CYANOCOBALAMIN
  9. CALCIUM [Concomitant]
     Active Substance: CALCIUM
  10. VITAMIN D [Concomitant]
     Active Substance: CHOLECALCIFEROL
  11. VITAMIN C [Concomitant]
     Active Substance: ASCORBIC ACID
  12. TIZANIDINE (TIZANIDINE) [Suspect]
     Active Substance: TIZANIDINE
     Indication: PAIN
     Dosage: ONE CAPSULE BY MOUTH BEDTIME  EVERY EIGHT HOURS NEEDED FOR MUSCLE/PAIN
     Route: 048
     Dates: start: 20141015, end: 20141127

REACTIONS (3)
  - Tongue haemorrhage [None]
  - Dysgeusia [None]
  - Tongue discolouration [None]

NARRATIVE: CASE EVENT DATE: 20141127
